FAERS Safety Report 4338550-9 (Version None)
Quarter: 2004Q2

REPORT INFORMATION
  Report Type: 
  Country: None (occurrence: None)
  Receive Date: 20040409
  Receipt Date: 20040326
  Transmission Date: 20050107
  Serious: Yes (Hospitalization)
  Sender: FDA-Public Use
  Company Number: 2004-BP-02439NB

PATIENT
  Age: 80 Year
  Sex: Female

DRUGS (3)
  1. BI-SIFROL TABLETS (PRAMIPEXOLE DIHYDROCHLORIDE) (TA) [Suspect]
     Indication: PARKINSON'S DISEASE
     Dosage: 1 MG PO
     Route: 048
  2. MENESIT (SINEMET       /NET) [Concomitant]
  3. NAUZELIN (DOMPERIDONE) [Concomitant]

REACTIONS (2)
  - ILEUS [None]
  - PNEUMONIA [None]
